FAERS Safety Report 18761801 (Version 1)
Quarter: 2021Q1

REPORT INFORMATION
  Report Type: Spontaneous
  Country: US (occurrence: US)
  Receive Date: 20210118
  Receipt Date: 20210118
  Transmission Date: 20210419
  Serious: Yes (Death)
  Sender: FDA-Public Use
  Company Number: None

PATIENT
  Sex: Female

DRUGS (15)
  1. HYDROCO/APAP [Concomitant]
     Active Substance: ACETAMINOPHEN\HYDROCODONE
  2. LEVOTHYROXIN [Concomitant]
     Active Substance: LEVOTHYROXINE
  3. BENZONATATE. [Concomitant]
     Active Substance: BENZONATATE
  4. LEVETIRACETA [Concomitant]
     Active Substance: LEVETIRACETAM
  5. PREDNISONE. [Concomitant]
     Active Substance: PREDNISONE
  6. TEMOZOLOMIDE 180MG CAP [Suspect]
     Active Substance: TEMOZOLOMIDE
     Indication: MALIGNANT MELANOMA
     Route: 048
     Dates: end: 202101
  7. DEXAMETHASON [Concomitant]
     Active Substance: DEXAMETHASONE
  8. ESTRADIOL. [Concomitant]
     Active Substance: ESTRADIOL
  9. NP THYROID [Concomitant]
     Active Substance: LEVOTHYROXINE\LIOTHYRONINE
  10. APAP/CODEINE [Concomitant]
     Active Substance: ACETAMINOPHEN\CODEINE PHOSPHATE
  11. PROLENSA [Concomitant]
     Active Substance: BROMFENAC SODIUM
  12. ATORVASTATIN [Concomitant]
     Active Substance: ATORVASTATIN
  13. HYDROXYCHLOR [Concomitant]
     Active Substance: HYDROXYCHLOROQUINE
  14. PREDNISOLONE. [Concomitant]
     Active Substance: PREDNISOLONE
  15. MORPHINE SUL [Concomitant]
     Active Substance: MORPHINE SULFATE

REACTIONS (1)
  - Death [None]
